FAERS Safety Report 7621244-1 (Version None)
Quarter: 2011Q3

REPORT INFORMATION
  Report Type: 
  Country: None (occurrence: None)
  Receive Date: 20110719
  Receipt Date: 20110712
  Transmission Date: 20111222
  Serious: Yes (Hospitalization)
  Sender: FDA-Public Use
  Company Number: FR-ABBOTT-11P-056-0838599-00

PATIENT
  Sex: Female
  Weight: 59 kg

DRUGS (6)
  1. VERCYTE [Suspect]
     Indication: THROMBOCYTOSIS
     Route: 048
     Dates: start: 20110301, end: 20110330
  2. MORPHINE SULFATE [Concomitant]
     Indication: PRODUCT USED FOR UNKNOWN INDICATION
     Dosage: ON REQUEST
     Dates: end: 20110330
  3. THS [Concomitant]
     Indication: PRODUCT USED FOR UNKNOWN INDICATION
     Dates: end: 20110330
  4. ASPEGIC 325 [Concomitant]
     Indication: PRODUCT USED FOR UNKNOWN INDICATION
  5. OXYCODONE HCL [Concomitant]
     Indication: PRODUCT USED FOR UNKNOWN INDICATION
     Dates: end: 20110330
  6. HYDREA [Concomitant]
     Indication: THROMBOCYTOSIS
     Dates: start: 20030101, end: 20110330

REACTIONS (1)
  - CYTOLYTIC HEPATITIS [None]
